FAERS Safety Report 20909854 (Version 4)
Quarter: 2022Q4

REPORT INFORMATION
  Report Type: Report from Study
  Country: US (occurrence: US)
  Receive Date: 20220603
  Receipt Date: 20221106
  Transmission Date: 20230113
  Serious: No
  Sender: FDA-Public Use
  Company Number: US-NOVARTISTESTPH-NVSC2022US127112

PATIENT
  Sex: Female

DRUGS (1)
  1. ENTRESTO [Suspect]
     Active Substance: SACUBITRIL\VALSARTAN
     Indication: Product used for unknown indication
     Dosage: 1 DOSAGE FORM, BID (24/26 MG)
     Route: 048
     Dates: start: 202204

REACTIONS (6)
  - Swelling [Not Recovered/Not Resolved]
  - Pharyngitis streptococcal [Unknown]
  - Productive cough [Not Recovered/Not Resolved]
  - Urticaria [Recovered/Resolved]
  - Cough [Unknown]
  - Hypotension [Recovering/Resolving]
